FAERS Safety Report 9938664 (Version 2)
Quarter: 2015Q4

REPORT INFORMATION
  Report Type: Report from Study
  Country: NO (occurrence: NO)
  Receive Date: 20140303
  Receipt Date: 20151020
  Transmission Date: 20160305
  Serious: Yes (Life-Threatening, Hospitalization)
  Sender: FDA-Public Use
  Company Number: NO-MYLANLABS-2014S1003540

PATIENT

DRUGS (10)
  1. MESASAL [Concomitant]
     Indication: PROCTITIS
     Dosage: 500 MG,UNK
     Route: 054
     Dates: start: 20110608
  2. LOPERAMIDE [Suspect]
     Active Substance: LOPERAMIDE
     Indication: PRODUCT USED FOR UNKNOWN INDICATION
     Dosage: UNK
     Route: 065
  3. REMICADE [Suspect]
     Active Substance: INFLIXIMAB
     Dosage: 300 UNK, UNK
     Dates: start: 20110225
  4. REMICADE [Suspect]
     Active Substance: INFLIXIMAB
     Dosage: UNK
     Dates: start: 20101220
  5. REMICADE [Suspect]
     Active Substance: INFLIXIMAB
     Dosage: UNK
     Route: 042
     Dates: start: 20110429
  6. REMICADE [Suspect]
     Active Substance: INFLIXIMAB
     Indication: COLITIS ULCERATIVE
     Dosage: 300 MG,UNK
     Route: 042
     Dates: start: 20110129, end: 20110429
  7. NEXIUM [Concomitant]
     Active Substance: ESOMEPRAZOLE MAGNESIUM
     Indication: GASTROOESOPHAGEAL REFLUX DISEASE
     Dosage: 20 MG,QD
     Route: 048
     Dates: start: 20100101
  8. ZYRTEC [Concomitant]
     Active Substance: CETIRIZINE HYDROCHLORIDE
     Indication: PRURITUS
     Dosage: 10 MG,QD
     Route: 065
     Dates: start: 20110501
  9. AFI-D2-FORTE [Concomitant]
     Dosage: UNK
     Route: 065
  10. CALCIGRAN FORTE [Concomitant]
     Indication: OSTEOPOROSIS
     Dosage: UNK
     Route: 048
     Dates: start: 20120201

REACTIONS (4)
  - Drug ineffective [Unknown]
  - Cytomegalovirus gastrointestinal infection [Recovered/Resolved]
  - No therapeutic response [Unknown]
  - Subileus [Recovered/Resolved]

NARRATIVE: CASE EVENT DATE: 20110617
